FAERS Safety Report 8408021-9 (Version None)
Quarter: 2012Q2

REPORT INFORMATION
  Report Type: 
  Country: None (occurrence: None)
  Receive Date: 20120604
  Receipt Date: 20120525
  Transmission Date: 20120825
  Serious: Yes (Hospitalization)
  Sender: FDA-Public Use
  Company Number: US-MERCK-1103USA00940

PATIENT
  Age: 61 Year
  Sex: Female
  Weight: 62 kg

DRUGS (11)
  1. ALENDRONATE SODIUM [Suspect]
     Indication: OSTEOPENIA
     Route: 048
     Dates: start: 20080201, end: 20100201
  2. VITAMINS (UNSPECIFIED) [Concomitant]
     Route: 065
  3. FOSAMAX [Suspect]
     Route: 048
     Dates: start: 20030801, end: 20040901
  4. PRILOSEC [Concomitant]
     Route: 065
     Dates: start: 19990629, end: 20080101
  5. GLUCOSAMINE [Concomitant]
     Route: 065
     Dates: start: 19950101, end: 20030101
  6. FOSAMAX [Suspect]
     Route: 048
  7. FOSAMAX [Suspect]
     Route: 048
     Dates: start: 20020201, end: 20030701
  8. FOSAMAX [Suspect]
     Route: 048
     Dates: start: 20051001, end: 20080101
  9. FOSAMAX [Suspect]
     Route: 048
     Dates: start: 20041001, end: 20050901
  10. CALCIUM (UNSPECIFIED) [Concomitant]
     Route: 065
     Dates: start: 19970101
  11. FOSAMAX [Suspect]
     Indication: OSTEOPENIA
     Route: 048
     Dates: start: 20011101, end: 20020101

REACTIONS (17)
  - MULTIPLE LENTIGINES SYNDROME [None]
  - CARPAL TUNNEL SYNDROME [None]
  - ELECTROCARDIOGRAM ST SEGMENT ABNORMAL [None]
  - INFECTION [None]
  - DRUG INEFFECTIVE [None]
  - ACTINIC KERATOSIS [None]
  - URTICARIA [None]
  - ARTHRITIS [None]
  - INSOMNIA [None]
  - NODULE [None]
  - CHRONIC OBSTRUCTIVE PULMONARY DISEASE [None]
  - ROTATOR CUFF SYNDROME [None]
  - ABDOMINAL DISCOMFORT [None]
  - NASAL TURBINATE HYPERTROPHY [None]
  - INTERVERTEBRAL DISC PROTRUSION [None]
  - FEMUR FRACTURE [None]
  - CHRONIC SINUSITIS [None]
